FAERS Safety Report 4608219-1 (Version None)
Quarter: 2005Q1

REPORT INFORMATION
  Report Type: 
  Country: None (occurrence: None)
  Receive Date: 20050311
  Receipt Date: 20050301
  Transmission Date: 20050727
  Serious: Yes (Hospitalization)
  Sender: FDA-Public Use
  Company Number: 200110877BFR

PATIENT
  Age: 59 Year
  Sex: Male

DRUGS (3)
  1. STALTOR  (CERIVASTATIN) [Suspect]
     Indication: HYPERCHOLESTEROLAEMIA
     Dosage: ORAL
     Route: 048
     Dates: start: 19990101, end: 20000101
  2. STALTOR  (CERIVASTATIN) [Suspect]
     Indication: HYPERCHOLESTEROLAEMIA
     Dosage: ORAL
     Route: 048
     Dates: start: 20010601, end: 20010801
  3. CHOLSTAT (CERIVASTATIN) [Suspect]
     Indication: HYPERCHOLESTEROLAEMIA
     Dosage: ORAL
     Route: 048
     Dates: start: 20000229, end: 20000101

REACTIONS (8)
  - ARTHRALGIA [None]
  - BACK PAIN [None]
  - BALANCE DISORDER [None]
  - CARDIOVASCULAR DISORDER [None]
  - DIFFICULTY IN WALKING [None]
  - FATIGUE [None]
  - HYDROCEPHALUS [None]
  - INSOMNIA [None]
